FAERS Safety Report 17000037 (Version 1)
Quarter: 2019Q4

REPORT INFORMATION
  Report Type: Spontaneous
  Country: CA (occurrence: CA)
  Receive Date: 20191106
  Receipt Date: 20191106
  Transmission Date: 20200122
  Serious: Yes (Life-Threatening)
  Sender: FDA-Public Use
  Company Number: CA-PFIZER INC-2019475127

PATIENT
  Age: 68 Year
  Sex: Female
  Weight: 68 kg

DRUGS (1)
  1. DOCETAXEL. [Suspect]
     Active Substance: DOCETAXEL
     Indication: BREAST CANCER
     Dosage: UNK
     Route: 042

REACTIONS (7)
  - Wheezing [Recovered/Resolved]
  - Flushing [Recovered/Resolved]
  - Unresponsive to stimuli [Recovered/Resolved]
  - Blood pressure abnormal [Recovered/Resolved]
  - Focal dyscognitive seizures [Recovered/Resolved]
  - Respiratory arrest [Recovered/Resolved]
  - Heart rate decreased [Recovered/Resolved]
